FAERS Safety Report 12406938 (Version 7)
Quarter: 2016Q3

REPORT INFORMATION
  Report Type: Report from Study
  Country: CA (occurrence: CA)
  Receive Date: 20160526
  Receipt Date: 20160913
  Transmission Date: 20161109
  Serious: Yes (Hospitalization, Other)
  Sender: FDA-Public Use
  Company Number: CA-PFIZER INC-2016274790

PATIENT
  Age: 53 Year
  Sex: Female

DRUGS (5)
  1. CLONAZEPAM. [Concomitant]
     Active Substance: CLONAZEPAM
     Dosage: 0.5 MG, BID
     Route: 048
  2. PREDNISONE. [Suspect]
     Active Substance: PREDNISONE
     Indication: COLITIS ULCERATIVE
     Dosage: 40 MG, QD
     Route: 048
  3. TECTA [Suspect]
     Active Substance: PANTOPRAZOLE MAGNESIUM
     Indication: DYSPEPSIA
     Dosage: 40 MG, QD
     Route: 048
     Dates: start: 201501, end: 20160607
  4. ENTYVIO [Suspect]
     Active Substance: VEDOLIZUMAB
     Indication: COLITIS ULCERATIVE
     Dosage: 300 MG, UNK
     Route: 042
     Dates: start: 20160525
  5. TRAZODONE /00447702/ [Concomitant]
     Active Substance: TRAZODONE HYDROCHLORIDE
     Dosage: 100 MG, QD
     Route: 048

REACTIONS (16)
  - Glossitis [Unknown]
  - Myalgia [Unknown]
  - Anaemia [Unknown]
  - Frequent bowel movements [Unknown]
  - Muscular weakness [Unknown]
  - Feeling abnormal [Unknown]
  - Throat irritation [Recovered/Resolved]
  - Dyspepsia [Unknown]
  - Colitis ulcerative [Unknown]
  - Eye swelling [Recovered/Resolved]
  - Hypoaesthesia oral [Unknown]
  - Arthralgia [Unknown]
  - Dry eye [Unknown]
  - Back pain [Unknown]
  - Pulmonary mass [Not Recovered/Not Resolved]
  - Vision blurred [Recovered/Resolved with Sequelae]

NARRATIVE: CASE EVENT DATE: 2015
